FAERS Safety Report 21241082 (Version 2)
Quarter: 2022Q4

REPORT INFORMATION
  Report Type: Report from Study
  Country: CA (occurrence: CA)
  Receive Date: 20220823
  Receipt Date: 20221203
  Transmission Date: 20230112
  Serious: Yes (Hospitalization, Other)
  Sender: FDA-Public Use
  Company Number: CA-ABBVIE-22K-028-4512605-00

PATIENT
  Sex: Male
  Weight: 98.429 kg

DRUGS (3)
  1. HUMIRA [Suspect]
     Active Substance: ADALIMUMAB
     Indication: Psoriasis
     Dosage: 1 INJECTION?FORM STRENGTH: 40 MILLIGRAM
     Route: 058
     Dates: start: 20220723
  2. HUMIRA [Suspect]
     Active Substance: ADALIMUMAB
     Route: 058
  3. TETANUS ANTITOXIN [Concomitant]
     Active Substance: TETANUS ANTITOXIN
     Indication: Product used for unknown indication

REACTIONS (3)
  - Accident [Recovered/Resolved]
  - Skin laceration [Unknown]
  - Accident [Unknown]

NARRATIVE: CASE EVENT DATE: 20220101
